FAERS Safety Report 19537417 (Version 1)
Quarter: 2021Q3

REPORT INFORMATION
  Report Type: Spontaneous
  Country: IS (occurrence: IS)
  Receive Date: 20210713
  Receipt Date: 20210713
  Transmission Date: 20211014
  Serious: Yes (Hospitalization)
  Sender: FDA-Public Use
  Company Number: IS-MYLANLABS-2021M1042081

PATIENT
  Sex: Male

DRUGS (6)
  1. OLANZAPINUM [Concomitant]
     Dosage: UNK
  2. ZOPICLONUM [Concomitant]
     Active Substance: ZOPICLONE
     Dosage: UNK
  3. PROPRANOLOL HYDROCHLORIDE. [Concomitant]
     Active Substance: PROPRANOLOL HYDROCHLORIDE
     Dosage: UNK
  4. OLANZAPINE MYLAN [Suspect]
     Active Substance: OLANZAPINE
     Indication: PRODUCT USED FOR UNKNOWN INDICATION
     Dosage: UNK
  5. LITHIUM. [Concomitant]
     Active Substance: LITHIUM
     Dosage: UNK
  6. CHLORPROTHIXENUM [Concomitant]
     Dosage: UNK

REACTIONS (2)
  - Delirium [Unknown]
  - Pyrexia [Unknown]
